FAERS Safety Report 7197258-5 (Version None)
Quarter: 2010Q4

REPORT INFORMATION
  Report Type: 
  Country: None (occurrence: None)
  Receive Date: 20101225
  Receipt Date: 20101221
  Transmission Date: 20110411
  Serious: Yes (Death, Hospitalization, Other)
  Sender: FDA-Public Use
  Company Number: US-AMGEN-USASP2010009237

PATIENT

DRUGS (8)
  1. NPLATE [Suspect]
     Indication: IDIOPATHIC THROMBOCYTOPENIC PURPURA
     Dosage: 250 A?G, UNK
     Dates: start: 20101022, end: 20101022
  2. CORTICOSTEROIDS [Concomitant]
     Indication: IDIOPATHIC THROMBOCYTOPENIC PURPURA
  3. IMMUNOGLOBULINS [Concomitant]
     Indication: IDIOPATHIC THROMBOCYTOPENIC PURPURA
  4. DANAZOL [Concomitant]
     Indication: IDIOPATHIC THROMBOCYTOPENIC PURPURA
  5. FOLIC ACID [Concomitant]
     Indication: IDIOPATHIC THROMBOCYTOPENIC PURPURA
  6. LOPRESSOR [Concomitant]
     Dosage: UNK
     Dates: start: 20101020
  7. LANTUS [Concomitant]
     Dosage: UNK
     Dates: start: 20101012
  8. HUMALOG [Concomitant]
     Dosage: UNK
     Dates: start: 20101012

REACTIONS (11)
  - ABDOMINAL DISTENSION [None]
  - ABDOMINAL PAIN [None]
  - ANAEMIA [None]
  - AUTOIMMUNE DISORDER [None]
  - BLOOD PRESSURE DECREASED [None]
  - HYPOVOLAEMIC SHOCK [None]
  - PNEUMONIA [None]
  - RENAL FAILURE ACUTE [None]
  - SEPSIS [None]
  - THROMBOCYTOPENIA [None]
  - UPPER GASTROINTESTINAL HAEMORRHAGE [None]
